FAERS Safety Report 26111275 (Version 1)
Quarter: 2025Q4

REPORT INFORMATION
  Report Type: Spontaneous
  Country: EU (occurrence: EU)
  Receive Date: 20251202
  Receipt Date: 20251202
  Transmission Date: 20260117
  Serious: Yes (Other)
  Sender: SAMSUNG BIOEPIS
  Company Number: EU-SAMSUNG BIOEPIS-SB-2025-39043

PATIENT
  Age: 65 Year
  Sex: Male

DRUGS (1)
  1. ADALIMUMAB [Suspect]
     Active Substance: ADALIMUMAB
     Indication: Linitis plastica
     Dosage: 4 COURSES IN TOTAL;

REACTIONS (3)
  - Adenocarcinoma [Unknown]
  - Drug ineffective for unapproved indication [Unknown]
  - Off label use [Unknown]
